FAERS Safety Report 5401509-4 (Version None)
Quarter: 2007Q3

REPORT INFORMATION
  Report Type: 
  Country: None (occurrence: None)
  Receive Date: 20070731
  Receipt Date: 20070723
  Transmission Date: 20080115
  Serious: Yes (Death)
  Sender: FDA-Public Use
  Company Number: JP-ROCHE-503238

PATIENT
  Age: 70 Year
  Sex: Male
  Weight: 60 kg

DRUGS (57)
  1. NAPROXEN [Suspect]
     Indication: PYREXIA
     Route: 048
     Dates: start: 20060920, end: 20060926
  2. ROHYPNOL [Suspect]
     Route: 048
     Dates: start: 20060913, end: 20060915
  3. ROHYPNOL [Suspect]
     Route: 048
     Dates: start: 20060918, end: 20060919
  4. ROHYPNOL [Suspect]
     Route: 048
     Dates: start: 20060921, end: 20060921
  5. ROHYPNOL [Suspect]
     Route: 048
     Dates: start: 20060923, end: 20060926
  6. CERCINE [Suspect]
     Indication: CONVULSION PROPHYLAXIS
     Route: 048
     Dates: start: 20060924, end: 20060926
  7. PERDIPINE [Suspect]
     Indication: HYPERTENSION
     Dosage: DOSE INCREASED OR DECREASED BASED ON BLOOD PRESSURE, ON AN AS NEEDED BASIS
     Route: 041
     Dates: start: 20060824, end: 20060824
  8. AMOBAN [Suspect]
     Dosage: DRUG NAME: AMOBAN TABLETS 7.5.
     Route: 048
     Dates: start: 20060920, end: 20060920
  9. AMOBAN [Suspect]
     Route: 048
     Dates: start: 20060922, end: 20060923
  10. AMOBAN [Suspect]
     Route: 048
     Dates: start: 20060925, end: 20060925
  11. MAGMITT [Suspect]
     Indication: CONSTIPATION
     Route: 048
     Dates: start: 20060829, end: 20060926
  12. PHENOBARBITAL TAB [Suspect]
     Indication: CONVULSION PROPHYLAXIS
     Route: 048
     Dates: start: 20060828, end: 20060923
  13. MYSLEE [Suspect]
     Route: 048
     Dates: start: 20060822, end: 20060822
  14. MYSLEE [Suspect]
     Route: 048
     Dates: start: 20060831, end: 20060831
  15. MYSLEE [Suspect]
     Route: 048
     Dates: start: 20060923, end: 20060923
  16. UBRETID [Suspect]
     Indication: NEUROGENIC BLADDER
     Route: 048
     Dates: start: 20060908, end: 20060929
  17. SPELEAR [Suspect]
     Indication: SPUTUM RETENTION
     Route: 048
     Dates: start: 20060914, end: 20060924
  18. SELBEX [Suspect]
     Indication: GASTRITIS
     Route: 048
     Dates: start: 20060924, end: 20060924
  19. LANSOPRAZOLE [Suspect]
     Indication: GASTRIC ULCER
     Route: 048
     Dates: start: 20060824, end: 20060824
  20. LANSOPRAZOLE [Suspect]
     Route: 048
     Dates: start: 20060906, end: 20060929
  21. TEGRETOL [Suspect]
     Indication: WOUND COMPLICATION
     Route: 048
     Dates: start: 20060922, end: 20060923
  22. ASPIRIN [Suspect]
     Indication: CEREBRAL INFARCTION
     Route: 048
     Dates: start: 20060830, end: 20060930
  23. POLARAMINE [Suspect]
     Indication: PRURITUS
     Route: 048
     Dates: start: 20060923, end: 20060923
  24. LOXONIN [Suspect]
     Indication: WOUND COMPLICATION
     Route: 048
     Dates: start: 20060918, end: 20060920
  25. LOXONIN [Suspect]
     Route: 048
     Dates: start: 20060923, end: 20060924
  26. VOLTAREN [Suspect]
     Indication: WOUND COMPLICATION
     Route: 054
     Dates: start: 20060824, end: 20060824
  27. VOLTAREN [Suspect]
     Dosage: FORM: RECTAL SUPPOSITORY.
     Route: 054
     Dates: start: 20060904
  28. VOLTAREN [Suspect]
     Route: 054
     Dates: start: 20060917, end: 20060917
  29. VOLTAREN [Suspect]
     Route: 054
     Dates: start: 20060918, end: 20060919
  30. VOLTAREN [Suspect]
     Route: 054
     Dates: start: 20060920, end: 20060922
  31. VOLTAREN [Suspect]
     Route: 054
     Dates: start: 20060923, end: 20060923
  32. KETOPROFEN [Suspect]
     Indication: WOUND COMPLICATION
     Dosage: FORM: TAPE. DOSE: ADJUSTED 10 X 14 CM.
     Route: 065
     Dates: start: 20060917
  33. LAXOBERON [Suspect]
     Indication: CONSTIPATION
     Dosage: DOSE: AS NEEDED
     Route: 048
     Dates: start: 20060902
  34. RINDERON-VG [Suspect]
     Indication: RASH
     Dosage: DOSE: AS NEEDED
     Route: 061
     Dates: start: 20060918
  35. SOLU-MEDROL [Suspect]
     Indication: ASTHMA
     Route: 041
     Dates: start: 20060920, end: 20060921
  36. AMINOFLUID [Suspect]
     Indication: FLUID REPLACEMENT
     Route: 041
     Dates: start: 20060925, end: 20060926
  37. PASIL [Suspect]
     Indication: INFECTION
     Route: 041
     Dates: start: 20060920, end: 20060920
  38. FINIBAX [Suspect]
     Indication: INFECTION
     Route: 041
     Dates: start: 20060919, end: 20060920
  39. FLUMARIN [Suspect]
     Indication: INFECTION
     Route: 041
     Dates: start: 20060917, end: 20060917
  40. NEO-MINOPHAGEN C [Suspect]
     Indication: HEPATIC FUNCTION ABNORMAL
     Route: 041
     Dates: start: 20060901, end: 20060911
  41. NEO-MINOPHAGEN C [Suspect]
     Route: 041
     Dates: start: 20060925, end: 20060927
  42. NEO-MINOPHAGEN C [Suspect]
     Route: 041
     Dates: start: 20060929, end: 20061012
  43. SENNOSIDE [Suspect]
     Indication: CONSTIPATION
     Route: 048
     Dates: start: 20060822, end: 20060822
  44. HUMULIN 70/30 [Suspect]
     Indication: HYPERGLYCAEMIA
     Route: 041
     Dates: start: 20060823, end: 20060824
  45. MOBIC [Suspect]
     Route: 048
     Dates: start: 20060824, end: 20060824
  46. ALBUMIN (HUMAN) [Suspect]
     Route: 041
     Dates: start: 20060824, end: 20060824
  47. 1 SUSPECTED DRUG [Suspect]
     Dosage: DRUG NAME REPORTED AS ANAPEINE (ROPIVACAINE)
     Route: 041
     Dates: start: 20060824, end: 20060826
  48. OMEPRAZOLE [Suspect]
     Route: 041
     Dates: start: 20060824, end: 20060830
  49. 1 SUSPECTED DRUG [Suspect]
     Indication: INFECTION PROPHYLAXIS
     Dosage: DRUG NAME REPORTED AS PANSPORIN (CEFOTIAM HYDROCHLORIDE)
     Route: 041
     Dates: start: 20060824, end: 20060826
  50. CATACLOT [Suspect]
     Indication: CEREBRAL INFARCTION
     Route: 041
     Dates: start: 20060824, end: 20060824
  51. MULTIVITAMIN ADDITIVE [Suspect]
     Indication: VITAMIN SUPPLEMENTATION
     Dosage: TOTAL DAILY DOSE =1 VIAL
     Route: 041
     Dates: start: 20060824, end: 20060830
  52. NOVO-HEPARIN [Suspect]
     Indication: DRUG USE FOR UNKNOWN INDICATION
     Route: 041
     Dates: start: 20060824, end: 20060827
  53. BISOLVON [Suspect]
     Dosage: TAKEN ON AN AS NEEDED BASIS
     Route: 041
     Dates: start: 20060824, end: 20060824
  54. BISOLVON [Suspect]
     Dosage: TAKEN ON AN AS NEEDED BASIS
     Route: 041
     Dates: start: 20060829, end: 20060904
  55. RADICUT [Suspect]
     Indication: CEREBRAL INFARCTION
     Route: 041
     Dates: start: 20060824, end: 20060903
  56. AMINO ACID INJ [Suspect]
     Indication: NUTRITIONAL SUPPORT
     Route: 041
     Dates: start: 20060824, end: 20060825
  57. UNSPECIFIED DRUG [Concomitant]

REACTIONS (3)
  - LIVER DISORDER [None]
  - SEPSIS [None]
  - STEVENS-JOHNSON SYNDROME [None]
